FAERS Safety Report 22307342 (Version 1)
Quarter: 2023Q2

REPORT INFORMATION
  Report Type: Spontaneous
  Country: US (occurrence: US)
  Receive Date: 20230511
  Receipt Date: 20230511
  Transmission Date: 20230721
  Serious: Yes (Other)
  Sender: FDA-Public Use
  Company Number: US-VELOXIS PHARMACEUTICALS, INC.-2023-VEL-00293

PATIENT
  Sex: Female

DRUGS (7)
  1. ENVARSUS XR [Suspect]
     Active Substance: TACROLIMUS
     Indication: Prophylaxis against transplant rejection
     Dosage: 0.5MG/KG IBW INITIATION DOSE TARGETED TROUGH LEVELS AFTER UTX DURING MONTHS 1?3: 10 NG/ML
     Route: 048
  2. ENVARSUS XR [Suspect]
     Active Substance: TACROLIMUS
     Dosage: TROUGH LEVEL WAS 5-8NG/ML DURING MONTHS 4?6
     Route: 048
  3. ENVARSUS XR [Suspect]
     Active Substance: TACROLIMUS
     Dosage: TROUGH LEVEL WAS 5?6NG/ML DURING MONTHS 7?12
     Route: 048
  4. ENVARSUS XR [Suspect]
     Active Substance: TACROLIMUS
     Dosage: TROUGH LEVEL WAS 3?5NG/ML AFTER THE FIRST YEAR POSTTRANSPLANT
     Route: 048
  5. MYCOPHENOLIC ACID [Suspect]
     Active Substance: MYCOPHENOLIC ACID
     Indication: Prophylaxis against transplant rejection
     Dosage: UNK
  6. MYCOPHENOLIC ACID [Suspect]
     Active Substance: MYCOPHENOLIC ACID
     Dosage: 3 MONTHS POSTTRANSPLANT
  7. AZATHIOPRINE [Suspect]
     Active Substance: AZATHIOPRINE
     Indication: Prophylaxis against transplant rejection
     Dosage: 1MG/KG (APPROXIMATELY 50?75MG)

REACTIONS (5)
  - Transplant rejection [Unknown]
  - Transplant rejection [Unknown]
  - Urinary tract infection [Unknown]
  - Sinusitis [Unknown]
  - Off label use [Unknown]
